FAERS Safety Report 9493606 (Version 1)
Quarter: 2013Q3

REPORT INFORMATION
  Report Type: Spontaneous
  Country: CN (occurrence: CN)
  Receive Date: 20130902
  Receipt Date: 20130902
  Transmission Date: 20140515
  Serious: Yes (Other)
  Sender: FDA-Public Use
  Company Number: CN-ROCHE-1268789

PATIENT
  Age: 55 Year
  Sex: Female
  Weight: 48.5 kg

DRUGS (1)
  1. PEGASYS [Suspect]
     Indication: HEPATITIS C
     Dosage: 180 UG
     Route: 058
     Dates: start: 20120701, end: 20120816

REACTIONS (3)
  - Erythropenia [Recovering/Resolving]
  - Leukopenia [Recovering/Resolving]
  - Haemoglobin decreased [Recovering/Resolving]
